FAERS Safety Report 10357046 (Version 1)
Quarter: 2014Q3

REPORT INFORMATION
  Report Type: Spontaneous
  Country: FR (occurrence: FR)
  Receive Date: 20140801
  Receipt Date: 20140801
  Transmission Date: 20150326
  Serious: Yes (Hospitalization)
  Sender: FDA-Public Use
  Company Number: FR-ELI_LILLY_AND_COMPANY-FR201407007634

PATIENT
  Age: 46 Year
  Sex: Female

DRUGS (8)
  1. EFIENT [Suspect]
     Active Substance: PRASUGREL HYDROCHLORIDE
     Indication: STENT PLACEMENT
     Dosage: UNK, UNKNOWN
     Route: 048
     Dates: start: 201406
  2. BISOPROLOL [Concomitant]
     Active Substance: BISOPROLOL
     Dosage: 5 MG, BID
     Route: 065
  3. INSPRA [Concomitant]
     Active Substance: EPLERENONE
     Dosage: 25 MG, QD
     Route: 065
  4. INEXIUM                            /01479302/ [Concomitant]
     Active Substance: ESOMEPRAZOLE MAGNESIUM
     Dosage: 80 MG, QD
     Route: 065
  5. DIFFU K [Concomitant]
     Active Substance: POTASSIUM CHLORIDE
     Dosage: UNK, BID
     Route: 065
  6. TRIATEC                            /00885601/ [Concomitant]
     Active Substance: RAMIPRIL
     Dosage: 5 MG, BID
     Route: 065
  7. KARDEGIC [Suspect]
     Active Substance: ASPIRIN LYSINE
     Indication: STENT PLACEMENT
     Dosage: UNK, UNKNOWN
     Route: 048
     Dates: start: 201406
  8. TAHOR [Concomitant]
     Active Substance: ATORVASTATIN CALCIUM
     Dosage: 40 MG, QD
     Route: 065

REACTIONS (1)
  - Thrombosis in device [Unknown]

NARRATIVE: CASE EVENT DATE: 201406
